FAERS Safety Report 24164918 (Version 1)
Quarter: 2024Q3

REPORT INFORMATION
  Report Type: Spontaneous
  Country: CN (occurrence: CN)
  Receive Date: 20240801
  Receipt Date: 20240801
  Transmission Date: 20241016
  Serious: Yes (Hospitalization)
  Sender: BEIGENE
  Company Number: CN-BEIGENE-BGN-2024-011509

PATIENT

DRUGS (3)
  1. TISLELIZUMAB [Suspect]
     Active Substance: TISLELIZUMAB
     Indication: Nasopharyngeal cancer
     Dosage: 200 MILLIGRAM
     Route: 041
     Dates: start: 20240614
  2. CISPLATIN [Suspect]
     Active Substance: CISPLATIN
     Indication: Nasopharyngeal cancer
     Dosage: 140 MILLIGRAM
     Route: 041
     Dates: start: 20240614
  3. GEMCITABINE HYDROCHLORIDE [Suspect]
     Active Substance: GEMCITABINE HYDROCHLORIDE
     Indication: Nasopharyngeal cancer
     Dosage: 1750 MILLIGRAM
     Route: 041
     Dates: start: 20240614

REACTIONS (1)
  - Myelosuppression [Recovering/Resolving]

NARRATIVE: CASE EVENT DATE: 20240620
